FAERS Safety Report 19563875 (Version 4)
Quarter: 2022Q2

REPORT INFORMATION
  Report Type: Spontaneous
  Country: US (occurrence: US)
  Receive Date: 20210716
  Receipt Date: 20220411
  Transmission Date: 20220721
  Serious: No
  Sender: FDA-Public Use
  Company Number: US-PFIZER INC-2021717039

PATIENT
  Age: 10 Year
  Sex: Male
  Weight: 28.58 kg

DRUGS (2)
  1. GENOTROPIN [Suspect]
     Active Substance: SOMATROPIN
     Indication: Short stature
     Dosage: 2.2 MG, (UNSPECIFIED FREQUENCY)
  2. GENOTROPIN [Suspect]
     Active Substance: SOMATROPIN
     Dosage: 2.2

REACTIONS (2)
  - Device breakage [Unknown]
  - Drug dose omission by device [Unknown]
